FAERS Safety Report 5700930-4 (Version None)
Quarter: 2008Q2

REPORT INFORMATION
  Report Type: 
  Country: None (occurrence: None)
  Receive Date: 20080410
  Receipt Date: 20080331
  Transmission Date: 20081010
  Serious: Yes (Life-Threatening, Hospitalization)
  Sender: FDA-Public Use
  Company Number: B0514388A

PATIENT
  Age: 24 Year
  Sex: Male

DRUGS (9)
  1. FLIXOTIDE DISKUS [Suspect]
     Indication: ASTHMA
     Dosage: 2PUFF PER DAY
     Route: 055
     Dates: start: 20071218, end: 20080203
  2. PROPYLTHIOURACIL [Suspect]
     Indication: HYPERTHYROIDISM
     Dosage: 6UNIT PER DAY
     Route: 048
     Dates: start: 20080114, end: 20080201
  3. VERAPAMIL [Suspect]
     Indication: HYPERTHYROIDISM
     Dosage: 120MG SEE DOSAGE TEXT
     Route: 048
     Dates: start: 20071231
  4. ATARAX [Suspect]
     Indication: HYPERTHYROIDISM
     Route: 048
     Dates: start: 20080114
  5. NEO-MERCAZOLE TAB [Suspect]
     Indication: HYPERTHYROIDISM
     Dosage: 40MG PER DAY
     Route: 048
     Dates: start: 20071230, end: 20080114
  6. TRACLEER [Concomitant]
     Route: 048
     Dates: start: 20060201
  7. PREVISCAN [Concomitant]
     Route: 048
     Dates: start: 20050801, end: 20080203
  8. XYZAL [Concomitant]
     Route: 065
     Dates: start: 20060601, end: 20080203
  9. POTASSIUM PERCHLORATE SOLUTION [Concomitant]
     Indication: HYPERTHYROIDISM
     Dosage: 400MG TWICE PER DAY
     Route: 065
     Dates: start: 20080114, end: 20080203

REACTIONS (11)
  - APHTHOUS STOMATITIS [None]
  - CONJUNCTIVAL DISORDER [None]
  - CONJUNCTIVITIS INFECTIVE [None]
  - EYE DISORDER [None]
  - GENERAL PHYSICAL HEALTH DETERIORATION [None]
  - HYPERTHERMIA [None]
  - ORAL DISORDER [None]
  - RASH VESICULAR [None]
  - SKIN DISORDER [None]
  - SKIN LESION [None]
  - TOXIC EPIDERMAL NECROLYSIS [None]
